FAERS Safety Report 8053725-3 (Version None)
Quarter: 2012Q1

REPORT INFORMATION
  Report Type: 
  Country: None (occurrence: None)
  Receive Date: 20120118
  Receipt Date: 20120113
  Transmission Date: 20120608
  Serious: Yes (Other)
  Sender: FDA-Public Use
  Company Number: US-PFIZER INC-K200800191

PATIENT
  Age: 67 Year
  Sex: Female

DRUGS (7)
  1. PLAVIX [Suspect]
     Dosage: UNK
  2. ALTACE [Suspect]
     Dosage: UNK
  3. PREGABALIN [Suspect]
     Indication: TRIGEMINAL NEURALGIA
     Dosage: 600 MG, 1X/DAY
     Dates: start: 20060101
  4. CLOPIDOGREL [Suspect]
     Dosage: UNK
  5. BISOPROLOL FUMARATE [Suspect]
     Dosage: UNK
  6. SIMVASTATIN [Suspect]
     Dosage: UNK
  7. ASPIRIN [Suspect]
     Dosage: UNK

REACTIONS (2)
  - TRIGEMINAL NEURALGIA [None]
  - DRUG INTERACTION [None]
